FAERS Safety Report 23631203 (Version 2)
Quarter: 2024Q1

REPORT INFORMATION
  Report Type: Spontaneous
  Country: US (occurrence: US)
  Receive Date: 20240314
  Receipt Date: 20240320
  Transmission Date: 20240410
  Serious: Yes (Other)
  Sender: FDA-Public Use
  Company Number: US-SUN PHARMACEUTICAL INDUSTRIES LTD-2024R1-435657

PATIENT
  Age: 23 Year
  Sex: Male

DRUGS (1)
  1. DEFERASIROX [Suspect]
     Active Substance: DEFERASIROX
     Indication: Serum ferritin increased
     Dosage: 23 MICROGRAM/KILOGRAM, DAILY
     Route: 065

REACTIONS (3)
  - Iron overload [Unknown]
  - Drug ineffective [Unknown]
  - Deafness [Unknown]
